FAERS Safety Report 18791947 (Version 1)
Quarter: 2021Q1

REPORT INFORMATION
  Report Type: Spontaneous
  Country: DK (occurrence: DK)
  Receive Date: 20210126
  Receipt Date: 20210126
  Transmission Date: 20210419
  Serious: Yes (Other)
  Sender: FDA-Public Use
  Company Number: DK-AMGEN-DNKSP2021012391

PATIENT
  Age: 59 Year
  Sex: Male

DRUGS (1)
  1. AIMOVIG [Suspect]
     Active Substance: ERENUMAB-AOOE
     Indication: MIGRAINE
     Dosage: 140 MILLIGRAM, QMO  (140 MG)
     Route: 058
     Dates: start: 201911, end: 202011

REACTIONS (1)
  - Erectile dysfunction [Recovering/Resolving]

NARRATIVE: CASE EVENT DATE: 202003
